FAERS Safety Report 25613318 (Version 1)
Quarter: 2025Q3

REPORT INFORMATION
  Report Type: Spontaneous
  Country: US (occurrence: None)
  Receive Date: 20250727
  Receipt Date: 20250727
  Transmission Date: 20251021
  Serious: Yes (Other)
  Sender: FDA-CTU
  Company Number: None

PATIENT
  Age: 69 Year
  Sex: Male
  Weight: 90.9 kg

DRUGS (1)
  1. YESCARTA [Suspect]
     Active Substance: AXICABTAGENE CILOLEUCEL
     Indication: Diffuse large B-cell lymphoma
     Route: 042
     Dates: start: 20220609, end: 20220609

REACTIONS (5)
  - Cytokine release syndrome [None]
  - Hepatic lesion [None]
  - Hepatic mass [None]
  - Hepatocellular carcinoma [None]
  - Sepsis [None]

NARRATIVE: CASE EVENT DATE: 20250509
